FAERS Safety Report 5212047-6 (Version None)
Quarter: 2007Q1

REPORT INFORMATION
  Report Type: 
  Country: None (occurrence: None)
  Receive Date: 20070118
  Receipt Date: 20070110
  Transmission Date: 20070707
  Serious: Yes (Hospitalization)
  Sender: FDA-Public Use
  Company Number: IT-ELI_LILLY_AND_COMPANY-IT200609006571

PATIENT
  Age: 39 Year
  Sex: Female

DRUGS (3)
  1. GEMZAR [Suspect]
     Indication: BREAST CANCER METASTATIC
     Dosage: 1250 MG, OTHER
     Route: 042
     Dates: start: 20060811, end: 20060825
  2. TAXOTERE [Concomitant]
     Indication: BREAST CANCER METASTATIC
     Dosage: 50 MG, OTHER
     Route: 042
     Dates: start: 20060811, end: 20060825
  3. KYTRIL [Concomitant]
     Dosage: UNK, OTHER
     Dates: start: 20060811, end: 20060825

REACTIONS (1)
  - PALMAR-PLANTAR ERYTHRODYSAESTHESIA SYNDROME [None]
